FAERS Safety Report 7089224-5 (Version None)
Quarter: 2010Q4

REPORT INFORMATION
  Report Type: 
  Country: None (occurrence: None)
  Receive Date: 20101029
  Receipt Date: 20101026
  Transmission Date: 20110411
  Serious: Yes (Hospitalization)
  Sender: FDA-Public Use
  Company Number: 8048631

PATIENT
  Sex: Female
  Weight: 97 kg

DRUGS (7)
  1. CERTOLIZUMAB PEGOL (CERTOLIZUMAB PEGOL) [Suspect]
     Indication: RHEUMATOID ARTHRITIS
     Dosage: (400 MG DOSE FREQ.: ONCE MONTHLY SUBCUTANEOUS), (400 MG, DOSE FREQ.: ONCE MONTHLY SUBCUTANEOUS)
     Route: 058
     Dates: start: 20030908, end: 20090707
  2. QUENSYL [Concomitant]
  3. OBSIDIAN /00023514/ [Concomitant]
  4. AMLODIPINE [Concomitant]
  5. AMITRIPTYLINE /00002202/ [Concomitant]
  6. L-THYROXINE /00068001/ [Concomitant]
  7. PANTOPRAZOLE [Concomitant]

REACTIONS (5)
  - ANOSMIA [None]
  - HYPOGEUSIA [None]
  - MOUTH BREATHING [None]
  - SINUSITIS [None]
  - THROAT IRRITATION [None]
